FAERS Safety Report 15666178 (Version 1)
Quarter: 2018Q4

REPORT INFORMATION
  Report Type: Spontaneous
  Country: JP (occurrence: JP)
  Receive Date: 20181128
  Receipt Date: 20181128
  Transmission Date: 20190205
  Serious: Yes (Death)
  Sender: FDA-Public Use
  Company Number: JP-BAYER-2018-158696

PATIENT
  Age: 88 Year
  Sex: Male

DRUGS (2)
  1. XOFIGO [Suspect]
     Active Substance: RADIUM RA-223 DICHLORIDE
     Indication: METASTASES TO BONE
  2. XOFIGO [Suspect]
     Active Substance: RADIUM RA-223 DICHLORIDE
     Indication: HORMONE-REFRACTORY PROSTATE CANCER
     Dosage: 55KBQ/KG, 3 TIMES COMPLETED
     Route: 042
     Dates: start: 20170426, end: 20170621

REACTIONS (3)
  - Asthenia [Fatal]
  - General physical health deterioration [Fatal]
  - Decreased appetite [None]

NARRATIVE: CASE EVENT DATE: 20170703
